FAERS Safety Report 12211633 (Version 1)
Quarter: 2016Q1

REPORT INFORMATION
  Report Type: Spontaneous
  Country: US (occurrence: US)
  Receive Date: 20160325
  Receipt Date: 20160325
  Transmission Date: 20160526
  Serious: Yes (Other)
  Sender: FDA-Public Use
  Company Number: US-MDT-ADR-2016-00309

PATIENT
  Sex: Female

DRUGS (1)
  1. LIORESAL [Suspect]
     Active Substance: BACLOFEN
     Route: 037

REACTIONS (2)
  - Infection [None]
  - Device related infection [None]
